FAERS Safety Report 9516272 (Version 2)
Quarter: 2013Q4

REPORT INFORMATION
  Report Type: Spontaneous
  Country: BE (occurrence: None)
  Receive Date: 20130909
  Receipt Date: 20131009
  Transmission Date: 20140711
  Serious: Yes (Other)
  Sender: FDA-Public Use
  Company Number: SYM-2013-10400

PATIENT
  Age: 69 Year
  Sex: Male

DRUGS (4)
  1. TILDIEM [Suspect]
     Indication: HYPERTENSION
  2. COAPROVEL [Suspect]
     Indication: HYPERTENSION
     Route: 048
  3. ASAFLOW (ACETYLSALICYLIC ACID) (ACETYLSALICYLIC ACID) [Concomitant]
  4. STILNOCT (ZOLPIDEM TARTRATE) (ZOLPIDEM TARTRATE) [Concomitant]

REACTIONS (5)
  - Ventricular extrasystoles [None]
  - Bradycardia [None]
  - Malaise [None]
  - Presyncope [None]
  - Fall [None]
